FAERS Safety Report 12107290 (Version 3)
Quarter: 2016Q2

REPORT INFORMATION
  Report Type: Spontaneous
  Country: JP (occurrence: JP)
  Receive Date: 20160223
  Receipt Date: 20160408
  Transmission Date: 20160815
  Serious: Yes (Life-Threatening, Hospitalization, Other)
  Sender: FDA-Public Use
  Company Number: JP-009507513-1602JPN009611

PATIENT
  Age: 78 Year
  Sex: Male
  Weight: 64 kg

DRUGS (7)
  1. BLOPRESS [Concomitant]
     Active Substance: CANDESARTAN CILEXETIL
     Indication: HYPERTENSION
     Dosage: DAILY DOSE UNKNOWN
     Route: 048
     Dates: start: 20150814
  2. THYRADIN [Concomitant]
     Active Substance: LEVOTHYROXINE
     Dosage: DIVIDED DOSE FREQUENCY UNKNOWN. ROUTE OF ADMINISTRATION: ORAL OR FEEDING TUBE. FORMULATION: CRUSHED
     Route: 050
     Dates: start: 1999
  3. MOHRUS [Concomitant]
     Active Substance: KETOPROFEN
     Dosage: DIVIDED DOSE FREQUENCY UNKNOWN
     Route: 061
     Dates: start: 20070509
  4. REBETOL [Suspect]
     Active Substance: RIBAVIRIN
     Indication: CHRONIC HEPATITIS C
     Dosage: DIVIDED DOSE FREQUENCY UNKNOWN
     Route: 048
     Dates: start: 20160108, end: 20160120
  5. MAGMITT [Concomitant]
     Active Substance: MAGNESIUM OXIDE
     Dosage: DIVIDED DOSE FREQUENCY UNKNOWN
     Route: 048
     Dates: start: 20150414
  6. SOVALDI [Suspect]
     Active Substance: SOFOSBUVIR
     Indication: CHRONIC HEPATITIS C
     Dosage: DIVIDED DOSE FREQUENCY UNKNOWN
     Route: 048
     Dates: start: 20160108, end: 20160120
  7. URSO [Concomitant]
     Active Substance: URSODIOL
     Dosage: DIVIDED DOSE FREQUENCY UNKNOWN. ROUTE OF ADMINISTRATION: ORAL OR FEEDING TUBE.
     Route: 050
     Dates: start: 20060322

REACTIONS (1)
  - Cerebral haemorrhage [Recovered/Resolved with Sequelae]

NARRATIVE: CASE EVENT DATE: 20160120
